FAERS Safety Report 6317597-7 (Version None)
Quarter: 2009Q3

REPORT INFORMATION
  Report Type: 
  Country: None (occurrence: None)
  Receive Date: 20090821
  Receipt Date: 20090819
  Transmission Date: 20100115
  Serious: Yes (Other)
  Sender: FDA-Public Use
  Company Number: US-BRISTOL-MYERS SQUIBB COMPANY-14738579

PATIENT
  Age: 53 Year
  Sex: Male
  Weight: 78 kg

DRUGS (5)
  1. ABILIFY [Suspect]
     Indication: BIPOLAR I DISORDER
     Dates: start: 20050101, end: 20080101
  2. KLONOPIN [Concomitant]
  3. WELLBUTRIN [Concomitant]
     Dates: end: 20050201
  4. ZYPREXA [Concomitant]
  5. PAXIL [Concomitant]

REACTIONS (2)
  - AKATHISIA [None]
  - NEUROLOGICAL EXAMINATION ABNORMAL [None]
